FAERS Safety Report 8620832-3 (Version None)
Quarter: 2012Q3

REPORT INFORMATION
  Report Type: 
  Country: None (occurrence: None)
  Receive Date: 20120824
  Receipt Date: 20120809
  Transmission Date: 20120928
  Serious: Yes (Hospitalization, Other)
  Sender: FDA-Public Use
  Company Number: JP-VERTEX PHARMACEUTICAL INC.-AE-2012-006234

PATIENT
  Age: 51 Year
  Sex: Male

DRUGS (16)
  1. PEGINTERFERON ALFA-2B [Concomitant]
     Indication: HEPATITIS C
     Route: 058
     Dates: start: 20120315, end: 20120412
  2. REBETOL [Concomitant]
     Indication: HEPATITIS C
     Dosage: 800 MG, UNK
     Route: 048
     Dates: start: 20120315, end: 20120323
  3. LANSOPRAZOLE [Concomitant]
     Dosage: 15 MG, QD
     Route: 048
     Dates: start: 20120315, end: 20120419
  4. PEGINTERFERON ALFA-2B [Concomitant]
     Dosage: 1.5 A?G/KG, UNK
     Route: 058
     Dates: start: 20120510
  5. REBETOL [Concomitant]
     Dosage: 200 MG, UNK
     Route: 048
     Dates: start: 20120510, end: 20120523
  6. LOXOPROFEN [Concomitant]
     Dosage: 180 MG, QD
     Route: 048
     Dates: start: 20120315, end: 20120328
  7. CLOBETASOL PROPIONATE [Concomitant]
     Route: 061
     Dates: start: 20120322
  8. LANSOPRAZOLE [Concomitant]
     Dosage: 15 MG, QD
     Route: 048
     Dates: start: 20120510, end: 20120530
  9. VX-950 [Suspect]
     Indication: HEPATITIS C
     Dosage: 2250 MG, QD
     Route: 048
     Dates: start: 20120315, end: 20120323
  10. REBETOL [Concomitant]
     Dosage: 400 MG, UNK
     Route: 048
     Dates: start: 20120324, end: 20120419
  11. REBETOL [Concomitant]
     Dosage: 400 MG, UNK
     Route: 048
     Dates: start: 20120524
  12. TALION [Concomitant]
     Dosage: 20 MG, QD
     Route: 048
     Dates: start: 20120510
  13. VX-950 [Suspect]
     Dosage: 1500 MG, QD
     Route: 048
     Dates: start: 20120324, end: 20120409
  14. VX-950 [Suspect]
     Dosage: 500 MG, QD
     Route: 048
     Dates: start: 20120510, end: 20120514
  15. TALION [Concomitant]
     Dosage: 20 MG, UNK
     Route: 048
     Dates: start: 20120315, end: 20120419
  16. VX-950 [Suspect]
     Dosage: 750 MG, QD
     Route: 048
     Dates: start: 20120410, end: 20120419

REACTIONS (2)
  - RASH [None]
  - RENAL IMPAIRMENT [None]
